FAERS Safety Report 17842534 (Version 2)
Quarter: 2020Q2

REPORT INFORMATION
  Report Type: Spontaneous
  Country: US (occurrence: US)
  Receive Date: 20200529
  Receipt Date: 20200618
  Transmission Date: 20200714
  Serious: Yes (Other)
  Sender: FDA-Public Use
  Company Number: US-GILEAD-2020-0468511

PATIENT
  Age: 54 Year
  Sex: Male
  Weight: 106.2 kg

DRUGS (20)
  1. BENZOCAINE. [Concomitant]
     Active Substance: BENZOCAINE
  2. BENZONATATE. [Concomitant]
     Active Substance: BENZONATATE
  3. HYDROCODONE BITARTRATE AND ACETAMINOPHEN [Concomitant]
     Active Substance: ACETAMINOPHEN\HYDROCODONE BITARTRATE
  4. CETEREZOL [Concomitant]
  5. ONDANSETRON [Concomitant]
     Active Substance: ONDANSETRON
  6. HYPROMELLOSE [Concomitant]
     Active Substance: HYPROMELLOSES
  7. ENOXAPARIN [Concomitant]
     Active Substance: ENOXAPARIN
  8. PANTOPRAZOLE [Concomitant]
     Active Substance: PANTOPRAZOLE
  9. ALBUTEROL HFA [Concomitant]
     Active Substance: ALBUTEROL SULFATE
  10. BISACODYL. [Concomitant]
     Active Substance: BISACODYL
  11. SIMETHICONE (DIMETHICONE) [Concomitant]
     Active Substance: DIMETHICONE
  12. MORPHINE [Concomitant]
     Active Substance: MORPHINE
  13. SODIUM CHLORIDE. [Concomitant]
     Active Substance: SODIUM CHLORIDE
  14. TRAMADOL. [Concomitant]
     Active Substance: TRAMADOL
  15. REMDESIVIR. [Suspect]
     Active Substance: REMDESIVIR
     Indication: PRODUCT USED FOR UNKNOWN INDICATION
     Dosage: 100 MG, QD
     Route: 042
     Dates: start: 20200515, end: 20200519
  16. ACETAMINOPHEN. [Concomitant]
     Active Substance: ACETAMINOPHEN
  17. DOCUSATE [Concomitant]
     Active Substance: DOCUSATE
  18. GUAIFENESIN. [Concomitant]
     Active Substance: GUAIFENESIN
  19. ALBUTEROL;IPRATROPIUM [Concomitant]
     Active Substance: ALBUTEROL\IPRATROPIUM
  20. MELATONIN [Concomitant]
     Active Substance: MELATONIN

REACTIONS (2)
  - Alanine aminotransferase increased [Recovered/Resolved]
  - Aspartate aminotransferase increased [Recovered/Resolved]

NARRATIVE: CASE EVENT DATE: 20200518
